FAERS Safety Report 17825625 (Version 1)
Quarter: 2020Q2

REPORT INFORMATION
  Report Type: Report from Study
  Country: CN (occurrence: CN)
  Receive Date: 20200526
  Receipt Date: 20200526
  Transmission Date: 20200714
  Serious: Yes (Hospitalization, Other)
  Sender: FDA-Public Use
  Company Number: CN-ROCHE-2606039

PATIENT
  Age: 50 Year
  Sex: Female

DRUGS (9)
  1. RANIBIZUMAB. [Suspect]
     Active Substance: RANIBIZUMAB
     Indication: MACULAR OEDEMA
     Dosage: 0.05 ML
     Route: 031
     Dates: start: 20191022
  2. SODIUM HYALURONATE [Concomitant]
     Active Substance: HYALURONATE SODIUM
     Indication: PRODUCT USED FOR UNKNOWN INDICATION
     Dosage: 1 DRP, QID
     Route: 065
  3. PREDNISONE ACETATE [Concomitant]
     Active Substance: PREDNISONE ACETATE
     Indication: PRODUCT USED FOR UNKNOWN INDICATION
     Route: 065
  4. LEVOFLOXACIN. [Concomitant]
     Active Substance: LEVOFLOXACIN
     Indication: PRODUCT USED FOR UNKNOWN INDICATION
     Dosage: 1 DRP, Q2H
     Route: 065
  5. INSULIN [Concomitant]
     Active Substance: INSULIN NOS
     Indication: TYPE 1 DIABETES MELLITUS
     Dosage: UNK, TID 6 INJECTIONS, SHORT ACTING
     Route: 058
     Dates: start: 1999
  6. RANIBIZUMAB. [Suspect]
     Active Substance: RANIBIZUMAB
     Indication: DIABETIC RETINOPATHY
     Dosage: 0.05 ML
     Route: 031
     Dates: start: 20191008
  7. INSULIN [Concomitant]
     Active Substance: INSULIN NOS
     Dosage: UNK, QD, 6 INJECTIONS, LONG-ACTING
     Route: 058
     Dates: start: 1999
  8. ADENOSINE TRIPHOSPHATE DISODIUM [Concomitant]
     Active Substance: ADENOSINE TRIPHOSPHATE DISODIUM
     Indication: PRODUCT USED FOR UNKNOWN INDICATION
     Dosage: 1 DF, TID
     Route: 048
  9. LECITHIN [Concomitant]
     Active Substance: LECITHIN
     Indication: PRODUCT USED FOR UNKNOWN INDICATION
     Dosage: 1 DF, TID
     Route: 048

REACTIONS (14)
  - Nitrite urine present [Not Recovered/Not Resolved]
  - Visual impairment [Not Recovered/Not Resolved]
  - Macular fibrosis [Recovering/Resolving]
  - Haemoglobin decreased [Not Recovered/Not Resolved]
  - Blood glucose increased [Not Recovered/Not Resolved]
  - Macular oedema [Recovered/Resolved]
  - Retinal thickening [Recovered/Resolved]
  - White blood cells urine positive [Not Recovered/Not Resolved]
  - Maculopathy [Not Recovered/Not Resolved]
  - Macular cyst [Recovered/Resolved]
  - Cataract [Recovering/Resolving]
  - Lenticular opacities [Not Recovered/Not Resolved]
  - Fructosamine decreased [Not Recovered/Not Resolved]
  - Visual acuity reduced [Recovering/Resolving]

NARRATIVE: CASE EVENT DATE: 20191125
